FAERS Safety Report 14167872 (Version 1)
Quarter: 2017Q4

REPORT INFORMATION
  Report Type: Spontaneous
  Country: US (occurrence: US)
  Receive Date: 20171107
  Receipt Date: 20171107
  Transmission Date: 20180321
  Serious: No
  Sender: FDA-Public Use
  Company Number: US-SA-2017SA089760

PATIENT
  Age: 80 Year
  Sex: Male

DRUGS (5)
  1. TOUJEO [Suspect]
     Active Substance: INSULIN GLARGINE
     Indication: DIABETES MELLITUS
     Dosage: DOSE:30 UNIT(S)
     Route: 051
     Dates: start: 20170514
  2. LANTUS [Concomitant]
     Active Substance: INSULIN GLARGINE
     Dosage: TOTAL DAILY DOSE OF 47 UNITS,SPLIT INTO TWO DOSES
  3. TOUJEO [Suspect]
     Active Substance: INSULIN GLARGINE
     Indication: DIABETES MELLITUS
     Dosage: DOSE:50 UNIT(S)
     Route: 051
     Dates: start: 201705, end: 20170513
  4. SOLOSTAR [Concomitant]
     Active Substance: DEVICE
     Dates: start: 20170514
  5. SOLOSTAR [Concomitant]
     Active Substance: DEVICE
     Dates: start: 201705

REACTIONS (1)
  - Blood glucose decreased [Unknown]

NARRATIVE: CASE EVENT DATE: 201705
